FAERS Safety Report 5403010-0 (Version None)
Quarter: 2007Q3

REPORT INFORMATION
  Report Type: 
  Country: None (occurrence: None)
  Receive Date: 20070801
  Receipt Date: 20070726
  Transmission Date: 20080115
  Serious: Yes (Hospitalization)
  Sender: FDA-Public Use
  Company Number: FR-ASTRAZENECA-2007CG00970

PATIENT
  Age: 72 Year
  Sex: Male

DRUGS (5)
  1. ATACAND [Suspect]
     Route: 048
     Dates: start: 20070402, end: 20070420
  2. ORBENIN CAP [Suspect]
     Route: 048
     Dates: start: 20070301, end: 20070401
  3. PYOSTACINE [Suspect]
     Route: 048
     Dates: start: 20070402, end: 20070410
  4. AMLODIPINE [Suspect]
     Route: 048
     Dates: start: 20070402
  5. HUMALOG [Concomitant]

REACTIONS (1)
  - DRUG RASH WITH EOSINOPHILIA AND SYSTEMIC SYMPTOMS [None]
